FAERS Safety Report 11363916 (Version 1)
Quarter: 2015Q3

REPORT INFORMATION
  Report Type: Spontaneous
  Country: US (occurrence: None)
  Receive Date: 20150810
  Receipt Date: 20150810
  Transmission Date: 20151125
  Serious: Yes (Life-Threatening, Hospitalization, Other)
  Sender: FDA-Public Use
  Company Number: None

PATIENT
  Age: 27 Year
  Sex: Female
  Weight: 86.18 kg

DRUGS (3)
  1. SUMATRIPTAN SUCC 50 MG [Concomitant]
     Active Substance: SUMATRIPTAN SUCCINATE
  2. BUTALB-ACETAMIN-CAFF 50-325-40 [Concomitant]
  3. SPRINTEC [Suspect]
     Active Substance: ETHINYL ESTRADIOL\NORGESTIMATE
     Indication: MENSTRUATION IRREGULAR
     Route: 048
     Dates: start: 20140418, end: 20140714

REACTIONS (4)
  - Economic problem [None]
  - General physical health deterioration [None]
  - Pulmonary embolism [None]
  - Anxiety [None]

NARRATIVE: CASE EVENT DATE: 20140714
